FAERS Safety Report 17681555 (Version 9)
Quarter: 2020Q2

REPORT INFORMATION
  Report Type: Report from Study
  Country: IN (occurrence: IN)
  Receive Date: 20200417
  Receipt Date: 20200617
  Transmission Date: 20200714
  Serious: Yes (Other)
  Sender: FDA-Public Use
  Company Number: NVSC2020IN061772

PATIENT
  Age: 49 Year
  Sex: Female
  Weight: 95.8 kg

DRUGS (11)
  1. RYZODEG 70/30 [Concomitant]
     Active Substance: INSULIN ASPART\INSULIN DEGLUDEC
     Dosage: UNK
     Route: 065
     Dates: start: 20200425
  2. AMARYL [Concomitant]
     Active Substance: GLIMEPIRIDE
     Indication: DIABETES MELLITUS
     Dosage: UNK
     Route: 048
     Dates: start: 20191224
  3. GALVUS MET [Suspect]
     Active Substance: METFORMIN HYDROCHLORIDE\VILDAGLIPTIN
     Indication: DIABETES MELLITUS
     Dosage: 2 DF (1-0-1, POST MEAL) (50/500)
     Route: 048
     Dates: start: 2005
  4. CORCIUM FIT [Concomitant]
     Indication: PRODUCT USED FOR UNKNOWN INDICATION
     Dosage: UNK
     Route: 065
  5. TOPAZ [Concomitant]
     Indication: PRODUCT USED FOR UNKNOWN INDICATION
     Dosage: UNK
     Route: 065
  6. RIVOTRIL [Concomitant]
     Active Substance: CLONAZEPAM
     Indication: PRODUCT USED FOR UNKNOWN INDICATION
     Route: 065
  7. CORBIS [Concomitant]
     Indication: DIABETES MELLITUS
     Dosage: UNK
     Route: 048
     Dates: start: 20191224
  8. PANTOCID DSR [Concomitant]
     Indication: DIABETES MELLITUS
     Dosage: UNK
     Route: 048
     Dates: start: 20191224
  9. STARTEL [Concomitant]
     Indication: PRODUCT USED FOR UNKNOWN INDICATION
     Dosage: UNK
     Route: 065
  10. PREMARIN [Concomitant]
     Active Substance: ESTROGENS, CONJUGATED
     Indication: DIABETES MELLITUS
     Dosage: UNK
     Route: 048
     Dates: start: 20191224
  11. RYZODEG 70/30 [Concomitant]
     Active Substance: INSULIN ASPART\INSULIN DEGLUDEC
     Indication: PRODUCT USED FOR UNKNOWN INDICATION
     Dosage: (30 UNITS)
     Route: 065

REACTIONS (29)
  - Migraine [Unknown]
  - Overweight [Unknown]
  - Pain [Unknown]
  - Coccydynia [Unknown]
  - Feeling abnormal [Unknown]
  - Product dose omission [Unknown]
  - Arthralgia [Not Recovered/Not Resolved]
  - Swelling [Unknown]
  - Urine odour abnormal [Unknown]
  - Depression [Unknown]
  - Electrolyte imbalance [Unknown]
  - Neck pain [Unknown]
  - Fluid retention [Unknown]
  - Hyperglycaemia [Unknown]
  - Facial bones fracture [Unknown]
  - Sleep disorder [Unknown]
  - Lethargy [Unknown]
  - Flatulence [Not Recovered/Not Resolved]
  - Spinal pain [Unknown]
  - Pollakiuria [Unknown]
  - Pain in extremity [Unknown]
  - Mouth ulceration [Unknown]
  - Hunger [Unknown]
  - Discomfort [Unknown]
  - Diarrhoea [Unknown]
  - Blood pressure increased [Unknown]
  - Bronchitis [Unknown]
  - Ligament sprain [Unknown]
  - Dizziness [Unknown]

NARRATIVE: CASE EVENT DATE: 2017
